FAERS Safety Report 16836820 (Version 1)
Quarter: 2019Q3

REPORT INFORMATION
  Report Type: Other
  Country: FR (occurrence: FR)
  Receive Date: 20190922
  Receipt Date: 20190922
  Transmission Date: 20191005
  Serious: Yes (Other)
  Sender: FDA-Public Use
  Company Number: PHHY2019FR052427

PATIENT

DRUGS (1)
  1. BSS PLUS [Suspect]
     Active Substance: CALCIUM CHLORIDE\DEXTROSE\MAGNESIUM CHLORIDE\OXIGLUTATIONE\POTASSIUM CHLORIDE\SODIUM BICARBONATE\SODIUM CHLORIDE\SODIUM PHOSPHATE\SODIUM PHOSPHATE, DIBASIC
     Indication: PRODUCT USED FOR UNKNOWN INDICATION
     Dosage: UNK
     Route: 065
     Dates: start: 20190226, end: 20190226

REACTIONS (2)
  - Product quality issue [Unknown]
  - Corneal oedema [Recovering/Resolving]

NARRATIVE: CASE EVENT DATE: 20190228
